FAERS Safety Report 9050683 (Version 3)
Quarter: 2013Q3

REPORT INFORMATION
  Report Type: Report from Study
  Country: JP (occurrence: JP)
  Receive Date: 20130205
  Receipt Date: 20130808
  Transmission Date: 20140515
  Serious: Yes (Hospitalization)
  Sender: FDA-Public Use
  Company Number: JP-ELI_LILLY_AND_COMPANY-JP201301008712

PATIENT
  Age: 75 Year
  Sex: Female

DRUGS (3)
  1. TERIPARATIDE [Suspect]
     Dosage: UNK
     Route: 058
     Dates: end: 201208
  2. TERIPARATIDE [Suspect]
     Dosage: UNK
     Route: 058
     Dates: start: 201209, end: 20130707
  3. TERIPARATIDE [Suspect]
     Dosage: UNK
     Route: 058
     Dates: start: 20130730

REACTIONS (6)
  - Hepatic function abnormal [Unknown]
  - Altered state of consciousness [Unknown]
  - Fracture pain [Unknown]
  - Dizziness [Unknown]
  - Back pain [Not Recovered/Not Resolved]
  - Medication error [Unknown]
